FAERS Safety Report 20755237 (Version 1)
Quarter: 2022Q2

REPORT INFORMATION
  Report Type: Spontaneous
  Country: US (occurrence: US)
  Receive Date: 20220427
  Receipt Date: 20220427
  Transmission Date: 20220721
  Serious: Yes (Other)
  Sender: FDA-Public Use
  Company Number: US-CELGENE-USA-20210505720

PATIENT
  Age: 85 Year
  Sex: Female
  Weight: 69.4 kg

DRUGS (1)
  1. POMALYST [Suspect]
     Active Substance: POMALIDOMIDE
     Indication: Plasma cell myeloma
     Dosage: 2 MILLIGRAM
     Route: 048
     Dates: start: 202103

REACTIONS (3)
  - Dementia [Unknown]
  - Constipation [Unknown]
  - Thrombosis [Unknown]

NARRATIVE: CASE EVENT DATE: 20210101
